FAERS Safety Report 16738959 (Version 3)
Quarter: 2019Q4

REPORT INFORMATION
  Report Type: Report from Study
  Country: US (occurrence: US)
  Receive Date: 20190826
  Receipt Date: 20191112
  Transmission Date: 20200122
  Serious: Yes (Hospitalization, Other)
  Sender: FDA-Public Use
  Company Number: US-TESARO-2019-TSO02663-US

PATIENT
  Age: 80 Year
  Sex: Female

DRUGS (1)
  1. NIRAPARIB [Suspect]
     Active Substance: NIRAPARIB
     Indication: PRODUCT USED FOR UNKNOWN INDICATION
     Dosage: 300 MG, QD
     Dates: start: 20190701, end: 2019

REACTIONS (6)
  - Intestinal obstruction [Unknown]
  - Malaise [Unknown]
  - Insomnia [Unknown]
  - Transfusion [Unknown]
  - Constipation [Unknown]
  - Wrist fracture [Unknown]

NARRATIVE: CASE EVENT DATE: 20190705
